APPROVED DRUG PRODUCT: CONSTULOSE
Active Ingredient: LACTULOSE
Strength: 10GM/15ML
Dosage Form/Route: SOLUTION;ORAL
Application: A070288 | Product #001
Applicant: ACTAVIS MID ATLANTIC LLC
Approved: Aug 15, 1988 | RLD: No | RS: No | Type: DISCN